FAERS Safety Report 6502624-4 (Version None)
Quarter: 2009Q4

REPORT INFORMATION
  Report Type: 
  Country: None (occurrence: None)
  Receive Date: 20091127
  Receipt Date: 20090731
  Transmission Date: 20100525
  Serious: Yes (Hospitalization, Other)
  Sender: FDA-Public Use
  Company Number: 001400

PATIENT
  Sex: Male

DRUGS (2)
  1. LACOSAMIDE [Suspect]
     Indication: CONVULSION
     Dosage: (50 MG BID INTRAVENOUS (NOT OTHERWISE SPECIFIED)), (100 MG BID INTRAVENOUS (NOT OTHERWISE SPECIFIED)
     Route: 042
  2. LACOSAMIDE [Suspect]
     Indication: CONVULSION
     Dosage: (200 MG BID ORAL)
     Route: 048

REACTIONS (2)
  - BRADYCARDIA [None]
  - SYNCOPE [None]
